FAERS Safety Report 11056321 (Version 1)
Quarter: 2015Q2

REPORT INFORMATION
  Report Type: Spontaneous
  Country: GB (occurrence: GB)
  Receive Date: 20150422
  Receipt Date: 20150422
  Transmission Date: 20150821
  Serious: Yes (Other)
  Sender: FDA-Public Use
  Company Number: GB-MYLANLABS-2015M1013358

PATIENT

DRUGS (2)
  1. TESTOSTERONE. [Suspect]
     Active Substance: TESTOSTERONE
     Route: 030
  2. TRENBOLONE [Suspect]
     Active Substance: TRENBOLONE
     Route: 030

REACTIONS (2)
  - Subcutaneous abscess [Unknown]
  - Nocardiosis [Unknown]
